FAERS Safety Report 25289471 (Version 1)
Quarter: 2025Q2

REPORT INFORMATION
  Report Type: Spontaneous
  Country: CN (occurrence: CN)
  Receive Date: 20250509
  Receipt Date: 20250509
  Transmission Date: 20250717
  Serious: Yes (Life-Threatening, Other)
  Sender: ALCON
  Company Number: CN-ALCON LABORATORIES-ALC2025CN002443

PATIENT

DRUGS (2)
  1. FLUORESCITE [Suspect]
     Active Substance: FLUORESCEIN SODIUM
     Indication: Angiogram retina
     Route: 042
  2. FLUORESCITE [Suspect]
     Active Substance: FLUORESCEIN SODIUM
     Indication: Imaging procedure
     Route: 042

REACTIONS (3)
  - Shock [Recovered/Resolved with Sequelae]
  - Urinary incontinence [Recovered/Resolved with Sequelae]
  - Anal incontinence [Recovered/Resolved with Sequelae]
